FAERS Safety Report 7965621-8 (Version None)
Quarter: 2011Q4

REPORT INFORMATION
  Report Type: 
  Country: None (occurrence: None)
  Receive Date: 20111208
  Receipt Date: 20111129
  Transmission Date: 20120403
  Serious: Yes (Death, Life-Threatening, Hospitalization)
  Sender: FDA-Public Use
  Company Number: JP-CEPHALON-2011001969

PATIENT
  Sex: Male
  Weight: 67 kg

DRUGS (8)
  1. BENDAMUSTINE HCL [Suspect]
     Indication: MANTLE CELL LYMPHOMA RECURRENT
     Route: 042
     Dates: start: 20110331
  2. BENDAMUSTINE HCL [Suspect]
     Route: 042
     Dates: start: 20110812
  3. RABEPRAZOLE SODIUM [Concomitant]
     Dates: start: 20110909, end: 20110911
  4. METHYLPREDNISOLONE SODIUM SUCCINATE [Concomitant]
     Dates: start: 20110909, end: 20110911
  5. PREDNISOLONE [Concomitant]
     Dates: start: 20110912, end: 20110919
  6. RITUXIMAB [Concomitant]
     Dates: start: 20110101, end: 20110808
  7. LANSOPRAZOLE [Concomitant]
     Dates: start: 20110912, end: 20110913
  8. GABEXATE MESILATE [Concomitant]
     Dates: start: 20110917

REACTIONS (5)
  - PNEUMOCYSTIS JIROVECI PNEUMONIA [None]
  - CYTOMEGALOVIRUS INFECTION [None]
  - DISSEMINATED INTRAVASCULAR COAGULATION [None]
  - ACUTE RESPIRATORY DISTRESS SYNDROME [None]
  - PYREXIA [None]
